FAERS Safety Report 5932276-3 (Version None)
Quarter: 2008Q4

REPORT INFORMATION
  Report Type: 
  Country: None (occurrence: None)
  Receive Date: 20081023
  Receipt Date: 20060828
  Transmission Date: 20090506
  Serious: Yes (Death, Other)
  Sender: FDA-Public Use
  Company Number: 2006AL002617

PATIENT
  Sex: Female

DRUGS (1)
  1. FLUOXETINE [Suspect]

REACTIONS (2)
  - ASPHYXIA [None]
  - COMPLETED SUICIDE [None]
